FAERS Safety Report 8548206-4 (Version None)
Quarter: 2012Q3

REPORT INFORMATION
  Report Type: 
  Country: None (occurrence: None)
  Receive Date: 20120730
  Receipt Date: 20120718
  Transmission Date: 20120928
  Serious: Yes (Hospitalization)
  Sender: FDA-Public Use
  Company Number: US-BIOGENIDEC-2012BI026020

PATIENT
  Age: 58 Year
  Sex: Female

DRUGS (4)
  1. AVONEX [Suspect]
     Indication: MULTIPLE SCLEROSIS
     Route: 030
     Dates: start: 19990426, end: 20010426
  2. AVONEX [Suspect]
     Route: 030
     Dates: start: 20120605
  3. AVONEX [Suspect]
     Route: 030
     Dates: start: 20111227, end: 20120228
  4. AVONEX [Suspect]
     Route: 030
     Dates: start: 20110413, end: 20110713

REACTIONS (1)
  - MULTIPLE SCLEROSIS RELAPSE [None]
